FAERS Safety Report 5393790-5 (Version None)
Quarter: 2007Q3

REPORT INFORMATION
  Report Type: 
  Country: None (occurrence: None)
  Receive Date: 20070723
  Receipt Date: 20070710
  Transmission Date: 20080115
  Serious: Yes (Other)
  Sender: FDA-Public Use
  Company Number: DE-AMGEN-UK223705

PATIENT

DRUGS (1)
  1. NEUPOGEN [Suspect]
     Indication: PERIPHERAL BLOOD STEM CELL APHERESIS

REACTIONS (5)
  - ALLERGY TO VENOM [None]
  - ARTHRALGIA [None]
  - FIBROMYALGIA [None]
  - TENOSYNOVITIS [None]
  - THYROIDITIS [None]
